FAERS Safety Report 17322626 (Version 1)
Quarter: 2020Q1

REPORT INFORMATION
  Report Type: Spontaneous
  Country: US (occurrence: US)
  Receive Date: 20200127
  Receipt Date: 20200127
  Transmission Date: 20200409
  Serious: No
  Sender: FDA-Public Use
  Company Number: US-ACORDA-ACO_162132_2019

PATIENT
  Sex: Female
  Weight: 86 kg

DRUGS (2)
  1. DALFAMPRIDINE. [Suspect]
     Active Substance: DALFAMPRIDINE
     Indication: GAIT DISTURBANCE
     Dosage: 10 MILLIGRAM, BID (MORNING AND NIGHT)
     Route: 065
     Dates: start: 201808
  2. DALFAMPRIDINE. [Suspect]
     Active Substance: DALFAMPRIDINE
     Indication: MULTIPLE SCLEROSIS

REACTIONS (6)
  - Asthenia [Not Recovered/Not Resolved]
  - Ill-defined disorder [Not Recovered/Not Resolved]
  - Product dose omission [Not Recovered/Not Resolved]
  - Therapeutic response unexpected [Unknown]
  - Incontinence [Not Recovered/Not Resolved]
  - Fatigue [Not Recovered/Not Resolved]
